FAERS Safety Report 4996694-2 (Version None)
Quarter: 2006Q2

REPORT INFORMATION
  Report Type: 
  Country: None (occurrence: None)
  Receive Date: 20060509
  Receipt Date: 20051003
  Transmission Date: 20061013
  Serious: Yes (Death, Hospitalization)
  Sender: FDA-Public Use
  Company Number: US-MERCK-0510USA02775

PATIENT
  Age: 48 Year
  Sex: Male
  Weight: 136 kg

DRUGS (1)
  1. VIOXX [Suspect]
     Indication: MUSCLE INJURY
     Route: 048
     Dates: start: 20030709, end: 20030919

REACTIONS (5)
  - BACK PAIN [None]
  - CORONARY ARTERY DISEASE [None]
  - MYOCARDIAL INFARCTION [None]
  - STOMACH DISCOMFORT [None]
  - VENTRICULAR DYSFUNCTION [None]
